FAERS Safety Report 7037519-3 (Version None)
Quarter: 2010Q4

REPORT INFORMATION
  Report Type: 
  Country: None (occurrence: None)
  Receive Date: 20101011
  Receipt Date: 20101004
  Transmission Date: 20110411
  Serious: Yes (Hospitalization)
  Sender: FDA-Public Use
  Company Number: B0678278A

PATIENT
  Sex: Male
  Weight: 82 kg

DRUGS (8)
  1. MELPHALAN HYDROCHLORIDE [Suspect]
     Indication: MULTIPLE MYELOMA
     Dosage: 10MG PER DAY
     Dates: start: 20100818
  2. THALIDOMIDE [Suspect]
     Indication: MULTIPLE MYELOMA
     Dosage: 200MG PER DAY
     Route: 048
     Dates: start: 20100818
  3. PREDNISONE [Suspect]
     Indication: MULTIPLE MYELOMA
     Dosage: 165MG PER DAY
     Dates: start: 20100818
  4. NEXIUM [Concomitant]
     Indication: PROPHYLAXIS
     Dosage: 20MG PER DAY
     Route: 048
     Dates: start: 20100601
  5. KARDEGIC [Concomitant]
     Indication: THROMBOSIS PROPHYLAXIS
     Dosage: 75MG PER DAY
     Route: 048
     Dates: start: 20100818
  6. ACUPAN [Concomitant]
     Indication: PAIN
     Dosage: 80MG AS REQUIRED
     Route: 048
     Dates: start: 20100601
  7. ACETAMINOPHEN [Concomitant]
     Indication: PAIN
     Route: 048
     Dates: start: 20100501
  8. ZOCOR [Concomitant]

REACTIONS (2)
  - FEBRILE NEUTROPENIA [None]
  - LUNG DISORDER [None]
